FAERS Safety Report 19848426 (Version 1)
Quarter: 2021Q3

REPORT INFORMATION
  Report Type: Spontaneous
  Country: US (occurrence: US)
  Receive Date: 20210918
  Receipt Date: 20210918
  Transmission Date: 20211014
  Serious: No
  Sender: FDA-Public Use
  Company Number: US-BION-009727

PATIENT
  Sex: Female

DRUGS (1)
  1. ZYRTEC [Suspect]
     Active Substance: CETIRIZINE HYDROCHLORIDE
     Indication: SEASONAL ALLERGY
     Dosage: A YEAR AGO, ONE PILL, ONCE DAILY

REACTIONS (3)
  - Urticaria [Recovering/Resolving]
  - Incorrect product administration duration [Not Recovered/Not Resolved]
  - Inflammation [Recovering/Resolving]
